FAERS Safety Report 25141023 (Version 1)
Quarter: 2025Q2

REPORT INFORMATION
  Report Type: Spontaneous
  Country: US (occurrence: None)
  Receive Date: 20250331
  Receipt Date: 20250331
  Transmission Date: 20250716
  Serious: Yes (Life-Threatening, Other)
  Sender: FDA-CTU
  Company Number: None

PATIENT
  Age: 54 Year
  Sex: Female
  Weight: 54 kg

DRUGS (1)
  1. MEDROXYPROGESTERONE ACETATE [Suspect]
     Active Substance: MEDROXYPROGESTERONE ACETATE
     Indication: Vaginal haemorrhage
     Dosage: 1 TABLET  TWICE A DY ORAL
     Route: 048
     Dates: start: 20241224, end: 20241224

REACTIONS (12)
  - Dizziness [None]
  - Disorientation [None]
  - Hypoaesthesia [None]
  - Headache [None]
  - Sleep apnoea syndrome [None]
  - Haemorrhage [None]
  - Urine flow decreased [None]
  - Fatigue [None]
  - Speech disorder [None]
  - Blindness transient [None]
  - Vision blurred [None]
  - Gait inability [None]

NARRATIVE: CASE EVENT DATE: 20241224
